FAERS Safety Report 9790207 (Version 1)
Quarter: 2013Q4

REPORT INFORMATION
  Report Type: Report from Study
  Country: GB (occurrence: GB)
  Receive Date: 20131231
  Receipt Date: 20131231
  Transmission Date: 20140711
  Serious: Yes (Hospitalization)
  Sender: FDA-Public Use
  Company Number: GB-JNJFOC-20131213324

PATIENT
  Age: 43 Year
  Sex: Male
  Weight: 90.9 kg

DRUGS (4)
  1. STELARA [Suspect]
     Indication: PSORIASIS
     Route: 058
     Dates: start: 20121114
  2. CITALOPRAM [Concomitant]
     Route: 048
     Dates: start: 20090701
  3. TELMISARTAN [Concomitant]
     Route: 048
     Dates: start: 20070101
  4. SIMVASTATIN [Concomitant]
     Route: 048
     Dates: start: 20080701

REACTIONS (2)
  - Lower respiratory tract infection [Recovered/Resolved]
  - Psoriasis [Recovered/Resolved]
